FAERS Safety Report 9919280 (Version 1)
Quarter: 2014Q1

REPORT INFORMATION
  Report Type: Spontaneous
  Country: US (occurrence: US)
  Receive Date: 20140224
  Receipt Date: 20140224
  Transmission Date: 20141002
  Serious: Yes (Other)
  Sender: FDA-Public Use
  Company Number: US-JNJFOC-20140206845

PATIENT
  Sex: Male

DRUGS (13)
  1. NUCYNTA ER [Suspect]
     Indication: PRODUCT USED FOR UNKNOWN INDICATION
     Dosage: TWICE DAILY
     Route: 048
     Dates: start: 2011
  2. MAGNESIUM [Concomitant]
     Indication: CARDIAC DISORDER
     Dosage: ONCE A DAY
     Route: 048
  3. VENTOLIN [Concomitant]
     Indication: WHEEZING
     Dosage: 1-2PUFFS/AS NEEDED
     Route: 055
     Dates: start: 2010
  4. FUROSEMIDE [Concomitant]
     Indication: LOCAL SWELLING
     Dosage: 3-4 YEARS AGO
     Route: 048
  5. FUROSEMIDE [Concomitant]
     Indication: LOCAL SWELLING
     Dosage: 2 DOSES IN ONE DAY
     Route: 048
  6. GABAPENTIN [Concomitant]
     Indication: NEUROPATHY PERIPHERAL
     Dosage: 10 YEARS AGO, TWICE DAILY
     Route: 048
  7. METOPROLOL [Concomitant]
     Indication: BLOOD PRESSURE
     Dosage: ONCE DAILY
     Route: 048
     Dates: start: 201401
  8. NOVOLOG [Concomitant]
     Indication: DIABETES MELLITUS
     Dosage: AT MEAL TIME, FOR 3-4 YEARS
     Route: 058
     Dates: start: 201312
  9. LANTUS [Concomitant]
     Indication: DIABETES MELLITUS
     Dosage: 4 YEARS AGO, TWICE DAILY
     Route: 058
  10. ASPIRIN [Concomitant]
     Indication: ANTICOAGULANT THERAPY
     Dosage: ONCE DAILY
     Route: 048
     Dates: start: 2010
  11. NAPROXEN [Concomitant]
     Indication: PAIN
     Dosage: AS NECESSSARY, 3 YEARS AGO
     Route: 048
  12. HYDROCODONE [Concomitant]
     Indication: PAIN
     Route: 048
     Dates: start: 2009
  13. ALBUTEROL SULFATE [Concomitant]
     Indication: WHEEZING
     Dosage: TWICE DAILY
     Route: 055
     Dates: start: 2010

REACTIONS (3)
  - Laryngitis [Not Recovered/Not Resolved]
  - Underdose [Not Recovered/Not Resolved]
  - Nasopharyngitis [Not Recovered/Not Resolved]
